FAERS Safety Report 7976912 (Version 5)
Quarter: 2013Q4

REPORT INFORMATION
  Report Type: Spontaneous
  Country: US (occurrence: US)
  Receive Date: 20110607
  Receipt Date: 20131128
  Transmission Date: 20140711
  Serious: Yes (Hospitalization, Other)
  Sender: FDA-Public Use
  Company Number: US-ASTRAZENECA-2011SE32192

PATIENT
  Age: 65 Year
  Sex: Female

DRUGS (19)
  1. NEXIUM [Suspect]
     Indication: GASTROOESOPHAGEAL REFLUX DISEASE
     Dosage: DAILY
     Route: 048
  2. NEXIUM [Suspect]
     Indication: GASTROOESOPHAGEAL REFLUX DISEASE
     Route: 048
     Dates: start: 200711, end: 201101
  3. NEXIUM [Suspect]
     Indication: GASTROOESOPHAGEAL REFLUX DISEASE
     Dosage: DAILY
     Route: 048
     Dates: start: 200712, end: 201102
  4. NEXIUM [Suspect]
     Indication: GASTROOESOPHAGEAL REFLUX DISEASE
     Route: 048
     Dates: start: 20091109, end: 20091110
  5. OMEPRAZOLE [Suspect]
     Indication: GASTROOESOPHAGEAL REFLUX DISEASE
     Route: 048
  6. LEVOTHYRODINE [Concomitant]
     Indication: THYROID DISORDER
  7. LEVOTHYRODINE [Concomitant]
     Indication: HYPERTENSION
  8. LEVOTHYRODINE [Concomitant]
     Indication: THYROID DISORDER
     Dosage: 0.075 MG 1 TAB DAILY
  9. LEVOTHYRODINE [Concomitant]
     Indication: HYPERTENSION
     Dosage: 0.075 MG 1 TAB DAILY
  10. HYDROCHLOROTHIAZIDE [Concomitant]
     Indication: HYPERTENSION
  11. ENALAPRIL [Concomitant]
     Indication: BLOOD PRESSURE ABNORMAL
  12. FAMOTIDINE [Concomitant]
  13. SIMVASTATIN [Concomitant]
  14. KLOR CON [Concomitant]
  15. TRAMADOL [Concomitant]
     Indication: PAIN
  16. BENZONATATE [Concomitant]
     Dates: start: 20081118
  17. CLONAZEPAM [Concomitant]
     Dates: start: 20081208
  18. FOSAMAX [Concomitant]
  19. PAXIL [Concomitant]

REACTIONS (7)
  - Asthma [Unknown]
  - Bone disorder [Unknown]
  - Osteoporosis [Unknown]
  - Multiple fractures [Unknown]
  - Osteopenia [Unknown]
  - Senile osteoporosis [Unknown]
  - Depression [Unknown]
